FAERS Safety Report 6362795-X (Version None)
Quarter: 2009Q3

REPORT INFORMATION
  Report Type: 
  Country: None (occurrence: None)
  Receive Date: 20090919
  Receipt Date: 20090608
  Transmission Date: 20100115
  Serious: No
  Sender: FDA-Public Use
  Company Number: US-ABBOTT-09P-163-0579343-00

PATIENT
  Sex: Male
  Weight: 72.64 kg

DRUGS (3)
  1. HUMIRA [Suspect]
     Indication: PSORIATIC ARTHROPATHY
     Route: 058
     Dates: end: 20090301
  2. HUMIRA [Suspect]
     Route: 058
     Dates: start: 20090301, end: 20090401
  3. HUMIRA [Suspect]
     Route: 058

REACTIONS (5)
  - DRUG DOSE OMISSION [None]
  - HERPES ZOSTER [None]
  - OPEN WOUND [None]
  - PERIODONTAL DISEASE [None]
  - RESORPTION BONE INCREASED [None]
